FAERS Safety Report 7350093-7 (Version None)
Quarter: 2011Q1

REPORT INFORMATION
  Report Type: 
  Country: None (occurrence: None)
  Receive Date: 20110314
  Receipt Date: 20110304
  Transmission Date: 20110831
  Serious: Yes (Hospitalization)
  Sender: FDA-Public Use
  Company Number: A0894555A

PATIENT
  Age: 60 Year
  Sex: Female

DRUGS (5)
  1. BENAZEPRIL HYDROCHLORIDE [Concomitant]
  2. AVANDIA [Suspect]
     Dosage: 4MG PER DAY
     Route: 048
     Dates: start: 20031031, end: 20090409
  3. LEXAPRO [Concomitant]
  4. RISPERDAL [Concomitant]
  5. SYNTHROID [Concomitant]

REACTIONS (1)
  - MYOCARDIAL INFARCTION [None]
